FAERS Safety Report 13664766 (Version 2)
Quarter: 2017Q3

REPORT INFORMATION
  Report Type: Spontaneous
  Country: US (occurrence: US)
  Receive Date: 20170619
  Receipt Date: 20170801
  Transmission Date: 20171127
  Serious: Yes (Other)
  Sender: FDA-Public Use
  Company Number: US-BEH-2017081310

PATIENT
  Age: 48 Year
  Sex: Female
  Weight: 60.32 kg

DRUGS (1)
  1. HIZENTRA [Suspect]
     Active Substance: HUMAN IMMUNOGLOBULIN G
     Indication: IMMUNODEFICIENCY COMMON VARIABLE
     Dosage: 6 G/30 ML, EVERY 4 DAYS
     Route: 058
     Dates: start: 20120911

REACTIONS (5)
  - Injection site erythema [Unknown]
  - Weight decreased [Unknown]
  - Skin infection [Unknown]
  - Injection site erythema [Unknown]
  - Soft tissue infection [Unknown]

NARRATIVE: CASE EVENT DATE: 201701
